FAERS Safety Report 22693313 (Version 2)
Quarter: 2024Q3

REPORT INFORMATION
  Report Type: Spontaneous
  Country: US (occurrence: US)
  Receive Date: 20230711
  Receipt Date: 20240722
  Transmission Date: 20241017
  Serious: Yes (Other)
  Sender: ASTELLAS
  Company Number: US-ASTELLAS-2023US009429

PATIENT
  Sex: Male

DRUGS (2)
  1. MYRBETRIQ [Suspect]
     Active Substance: MIRABEGRON
     Indication: Urge incontinence
     Dosage: 25 MG, ONCE DAILY AT NIGHT
     Route: 065
     Dates: start: 202303
  2. FLOMAX [Concomitant]
     Active Substance: TAMSULOSIN HYDROCHLORIDE
     Indication: Bladder disorder
     Dosage: UNK UNK, UNKNOWN FREQ.
     Route: 065
     Dates: end: 202303

REACTIONS (3)
  - Blood pressure increased [Unknown]
  - Blood glucose abnormal [Unknown]
  - Urine flow decreased [Unknown]
